FAERS Safety Report 20714101 (Version 2)
Quarter: 2022Q3

REPORT INFORMATION
  Report Type: Spontaneous
  Country: US (occurrence: US)
  Receive Date: 20220415
  Receipt Date: 20220728
  Transmission Date: 20221027
  Serious: Yes (Other)
  Sender: FDA-Public Use
  Company Number: US-PFIZER INC-2020238562

PATIENT
  Age: 67 Year
  Sex: Female

DRUGS (1)
  1. IBRANCE [Suspect]
     Active Substance: PALBOCICLIB
     Dosage: 100 MG, CYCLIC (TAKE 1 TAB ORAL DAILY FOR 21 DAYS ON AND 14 DAYS OFF)
     Route: 048

REACTIONS (3)
  - Cardiac operation [Unknown]
  - Alopecia [Unknown]
  - Fatigue [Unknown]
